FAERS Safety Report 7503034-3 (Version None)
Quarter: 2011Q2

REPORT INFORMATION
  Report Type: 
  Country: None (occurrence: None)
  Receive Date: 20110525
  Receipt Date: 20101019
  Transmission Date: 20111010
  Serious: No
  Sender: FDA-Public Use
  Company Number: US-NOVEN-ALL1-2010-05142

PATIENT
  Sex: Male
  Weight: 58.957 kg

DRUGS (5)
  1. VITAMINS NOS [Concomitant]
     Dosage: UNK, 1X/DAY:QD
     Route: 048
  2. DAYTRANA [Suspect]
     Dosage: 30 MG, 1X/DAY:QD
     Route: 062
     Dates: start: 20100811
  3. PREVACID [Concomitant]
     Dosage: 15 MG, 1X/DAY:QD
     Route: 048
     Dates: start: 20050101
  4. RHINOCORT [Concomitant]
     Dosage: 32 MCI, AS REQ'D
     Route: 045
  5. ZYRTEC [Concomitant]
     Dosage: 10 MG, AS REQ'D
     Route: 048
     Dates: start: 20080101

REACTIONS (2)
  - APPLICATION SITE ERYTHEMA [None]
  - APPLICATION SITE IRRITATION [None]
